FAERS Safety Report 26076040 (Version 2)
Quarter: 2025Q4

REPORT INFORMATION
  Report Type: Report from Study
  Country: EU (occurrence: EU)
  Receive Date: 20251121
  Receipt Date: 20251203
  Transmission Date: 20260118
  Serious: Yes (Hospitalization, Other)
  Sender: PFIZER
  Company Number: EU-AstrazenecaRSG-4105-D926NC00001(Prod)000006

PATIENT
  Age: 62 Year
  Sex: Male
  Weight: 78 kg

DRUGS (78)
  1. CARBOPLATIN [Suspect]
     Active Substance: CARBOPLATIN
     Indication: Non-small cell lung cancer metastatic
     Dosage: 5 EVERY THREE WEEKS
     Route: 042
     Dates: start: 20230921, end: 20230921
  2. CARBOPLATIN [Suspect]
     Active Substance: CARBOPLATIN
     Dosage: 4 EVERY THREE WEEKS
     Route: 042
     Dates: start: 20231106, end: 20231106
  3. CARBOPLATIN [Suspect]
     Active Substance: CARBOPLATIN
     Dosage: 4 EVERY THREE WEEKS
     Route: 042
     Dates: start: 20231127, end: 20231127
  4. CARBOPLATIN [Suspect]
     Active Substance: CARBOPLATIN
     Dosage: 4 AUC, ONCE EVERY 3 WK
     Route: 042
     Dates: start: 20231127, end: 20231127
  5. CARBOPLATIN [Suspect]
     Active Substance: CARBOPLATIN
     Dosage: 4 AUC, ONCE EVERY 3 WK
     Route: 042
     Dates: start: 20231106, end: 20231106
  6. CARBOPLATIN [Suspect]
     Active Substance: CARBOPLATIN
     Dosage: 5 AUC, ONCE EVERY 3 WK
     Route: 042
     Dates: start: 20230921, end: 20230921
  7. CARBOPLATIN [Suspect]
     Active Substance: CARBOPLATIN
     Dosage: 5 AUC, ONCE EVERY 3 WK
     Route: 042
     Dates: start: 20231012, end: 20231012
  8. CISPLATIN [Suspect]
     Active Substance: CISPLATIN
     Indication: Non-small cell lung cancer metastatic
     Dosage: 75 MG/M2, ONCE EVERY 3 WK
     Route: 042
  9. PEMETREXED [Suspect]
     Active Substance: PEMETREXED
     Indication: Non-small cell lung cancer metastatic
     Dosage: 500 MG/M2, ONCE EVERY 3 WK (FORMULATION: INJECTION)
     Route: 042
     Dates: start: 20230921, end: 20241112
  10. PEMETREXED [Suspect]
     Active Substance: PEMETREXED
     Dosage: 375 MG/M2, ONCE EVERY 3 WK
     Route: 042
     Dates: start: 20241204, end: 20250606
  11. PEMETREXED [Suspect]
     Active Substance: PEMETREXED
     Dosage: 500 MG/M2, ONCE EVERY 3 WK
     Route: 042
     Dates: start: 20241112, end: 20241112
  12. PEMETREXED [Suspect]
     Active Substance: PEMETREXED
     Dosage: 500 MG/M2, ONCE EVERY 3 WK
     Route: 042
     Dates: start: 20240516, end: 20240516
  13. PEMETREXED [Suspect]
     Active Substance: PEMETREXED
     Dosage: 500 MG/M2, ONCE EVERY 3 WK
     Route: 042
     Dates: start: 20240726, end: 20240726
  14. PEMETREXED [Suspect]
     Active Substance: PEMETREXED
     Dosage: 500 MG/M2, ONCE EVERY 3 WK
     Route: 042
     Dates: start: 20240130, end: 20240130
  15. PEMETREXED [Suspect]
     Active Substance: PEMETREXED
     Dosage: 500 MG/M2, ONCE EVERY 3 WK
     Route: 042
     Dates: start: 20240705, end: 20240705
  16. PEMETREXED [Suspect]
     Active Substance: PEMETREXED
     Dosage: 500 MG/M2, ONCE EVERY 3 WK
     Route: 042
     Dates: start: 20231012, end: 20231012
  17. PEMETREXED [Suspect]
     Active Substance: PEMETREXED
     Dosage: 500 MG/M2, ONCE EVERY 3 WK
     Route: 042
     Dates: start: 20241204, end: 20241204
  18. PEMETREXED [Suspect]
     Active Substance: PEMETREXED
     Dosage: 500 MG/M2, ONCE EVERY 3 WK
     Route: 042
     Dates: start: 20231127, end: 20231127
  19. PEMETREXED [Suspect]
     Active Substance: PEMETREXED
     Dosage: 500 MG/M2, ONCE EVERY 3 WK
     Route: 042
     Dates: start: 20250516, end: 20250516
  20. PEMETREXED [Suspect]
     Active Substance: PEMETREXED
     Dosage: 500 MG/M2, ONCE EVERY 3 WK
     Route: 042
     Dates: start: 20240424, end: 20240424
  21. PEMETREXED [Suspect]
     Active Substance: PEMETREXED
     Dosage: 500 MG/M2, ONCE EVERY 3 WK
     Route: 042
     Dates: start: 20241001, end: 20241001
  22. PEMETREXED [Suspect]
     Active Substance: PEMETREXED
     Dosage: 500 MG/M2, ONCE EVERY 3 WK
     Route: 042
     Dates: start: 20231106, end: 20231106
  23. PEMETREXED [Suspect]
     Active Substance: PEMETREXED
     Dosage: 500 MG/M2, ONCE EVERY 3 WK
     Route: 042
     Dates: start: 20240910, end: 20240910
  24. PEMETREXED [Suspect]
     Active Substance: PEMETREXED
     Dosage: 500 MG/M2, ONCE EVERY 3 WK
     Route: 042
     Dates: start: 20240820, end: 20240820
  25. PEMETREXED [Suspect]
     Active Substance: PEMETREXED
     Dosage: 500 MG/M2, ONCE EVERY 3 WK
     Route: 042
     Dates: start: 20240613, end: 20240613
  26. PEMETREXED [Suspect]
     Active Substance: PEMETREXED
     Dosage: 500 MG/M2, ONCE EVERY 3 WK
     Route: 042
     Dates: start: 20231219, end: 20231219
  27. PEMETREXED [Suspect]
     Active Substance: PEMETREXED
     Dosage: 500 MG/M2, ONCE EVERY 3 WK
     Route: 042
     Dates: start: 20241022, end: 20241022
  28. PEMETREXED [Suspect]
     Active Substance: PEMETREXED
     Dosage: 500 MG/M2, ONCE EVERY 3 WK
     Route: 042
     Dates: start: 20250404, end: 20250404
  29. PEMETREXED [Suspect]
     Active Substance: PEMETREXED
     Dosage: 500 MG/M2, ONCE EVERY 3 WK
     Route: 042
     Dates: start: 20240312, end: 20240312
  30. PEMETREXED [Suspect]
     Active Substance: PEMETREXED
     Dosage: 500 MG/M2, ONCE EVERY 3 WK
     Route: 042
     Dates: start: 20240220, end: 20240220
  31. PEMETREXED [Suspect]
     Active Substance: PEMETREXED
     Dosage: 500 MG/M2, ONCE EVERY 3 WK
     Route: 042
     Dates: start: 20250606, end: 20250606
  32. PEMETREXED [Suspect]
     Active Substance: PEMETREXED
     Dosage: 500 MG/M2, ONCE EVERY 3 WK
     Route: 042
     Dates: start: 20230921, end: 20230921
  33. PEMETREXED [Suspect]
     Active Substance: PEMETREXED
     Dosage: 500 MG/M2, ONCE EVERY 3 WK
     Route: 042
     Dates: start: 20250124, end: 20250124
  34. PEMETREXED [Suspect]
     Active Substance: PEMETREXED
     Dosage: 500 MG/M2, ONCE EVERY 3 WK
     Route: 042
     Dates: start: 20250424, end: 20250424
  35. PEMETREXED [Suspect]
     Active Substance: PEMETREXED
     Dosage: 500 MG/M2, ONCE EVERY 3 WK
     Route: 042
     Dates: start: 20240109, end: 20240109
  36. PEMETREXED [Suspect]
     Active Substance: PEMETREXED
     Dosage: 500 MG/M2, ONCE EVERY 3 WK
     Route: 042
     Dates: start: 20240403, end: 20240403
  37. PEMBROLIZUMAB [Suspect]
     Active Substance: PEMBROLIZUMAB
     Indication: Non-small cell lung cancer metastatic
     Dosage: 200 MG, ONCE EVERY 3 WK
     Route: 042
     Dates: start: 20250424, end: 20250424
  38. PEMBROLIZUMAB [Suspect]
     Active Substance: PEMBROLIZUMAB
     Dosage: 200 MG, ONCE EVERY 3 WK
     Route: 042
     Dates: start: 20231127, end: 20231127
  39. PEMBROLIZUMAB [Suspect]
     Active Substance: PEMBROLIZUMAB
     Dosage: 200 MG, ONCE EVERY 3 WK
     Route: 042
     Dates: start: 20231012, end: 20231012
  40. PEMBROLIZUMAB [Suspect]
     Active Substance: PEMBROLIZUMAB
     Dosage: 200 MG, ONCE EVERY 3 WK
     Route: 042
     Dates: start: 20231219, end: 20231219
  41. PEMBROLIZUMAB [Suspect]
     Active Substance: PEMBROLIZUMAB
     Dosage: 200 MG, ONCE EVERY 3 WK
     Route: 042
     Dates: start: 20240220, end: 20240220
  42. PEMBROLIZUMAB [Suspect]
     Active Substance: PEMBROLIZUMAB
     Dosage: 200 MG, ONCE EVERY 3 WK
     Route: 042
     Dates: start: 20240312, end: 20240312
  43. PEMBROLIZUMAB [Suspect]
     Active Substance: PEMBROLIZUMAB
     Dosage: 200 MG, ONCE EVERY 3 WK
     Route: 042
     Dates: start: 20241001, end: 20241001
  44. PEMBROLIZUMAB [Suspect]
     Active Substance: PEMBROLIZUMAB
     Dosage: 200 MG, ONCE EVERY 3 WK
     Route: 042
     Dates: start: 20240613, end: 20240613
  45. PEMBROLIZUMAB [Suspect]
     Active Substance: PEMBROLIZUMAB
     Dosage: 200 MG, ONCE EVERY 3 WK
     Route: 042
     Dates: start: 20250606, end: 20250606
  46. PEMBROLIZUMAB [Suspect]
     Active Substance: PEMBROLIZUMAB
     Dosage: 200 MG, ONCE EVERY 3 WK
     Route: 042
     Dates: start: 20231106, end: 20231106
  47. PEMBROLIZUMAB [Suspect]
     Active Substance: PEMBROLIZUMAB
     Dosage: 200 MG, ONCE EVERY 3 WK
     Route: 042
     Dates: start: 20241022, end: 20241022
  48. PEMBROLIZUMAB [Suspect]
     Active Substance: PEMBROLIZUMAB
     Dosage: 200 MG, ONCE EVERY 3 WK
     Route: 042
     Dates: start: 20240726, end: 20240726
  49. PEMBROLIZUMAB [Suspect]
     Active Substance: PEMBROLIZUMAB
     Dosage: 200 MG, ONCE EVERY 3 WK
     Route: 042
     Dates: start: 20250314, end: 20250314
  50. PEMBROLIZUMAB [Suspect]
     Active Substance: PEMBROLIZUMAB
     Dosage: 200 MG, ONCE EVERY 3 WK
     Route: 042
     Dates: start: 20240109, end: 20240109
  51. PEMBROLIZUMAB [Suspect]
     Active Substance: PEMBROLIZUMAB
     Dosage: 200 MG, ONCE EVERY 3 WK
     Route: 042
     Dates: start: 20240820, end: 20240820
  52. PEMBROLIZUMAB [Suspect]
     Active Substance: PEMBROLIZUMAB
     Dosage: 200 MG, ONCE EVERY 3 WK
     Route: 042
     Dates: start: 20240403, end: 20240403
  53. PEMBROLIZUMAB [Suspect]
     Active Substance: PEMBROLIZUMAB
     Dosage: 200 MG, ONCE EVERY 3 WK
     Route: 042
     Dates: start: 20250516, end: 20250516
  54. PEMBROLIZUMAB [Suspect]
     Active Substance: PEMBROLIZUMAB
     Dosage: 200 MG, ONCE EVERY 3 WK
     Route: 042
     Dates: start: 20240705, end: 20240705
  55. PEMBROLIZUMAB [Suspect]
     Active Substance: PEMBROLIZUMAB
     Dosage: 200 MG, ONCE EVERY 3 WK
     Route: 042
     Dates: start: 20240910, end: 20240910
  56. PEMBROLIZUMAB [Suspect]
     Active Substance: PEMBROLIZUMAB
     Dosage: 200 MG, ONCE EVERY 3 WK
     Route: 042
     Dates: start: 20230921, end: 20230921
  57. PEMBROLIZUMAB [Suspect]
     Active Substance: PEMBROLIZUMAB
     Dosage: 200 MG, ONCE EVERY 3 WK
     Route: 042
     Dates: start: 20241112, end: 20241112
  58. PEMBROLIZUMAB [Suspect]
     Active Substance: PEMBROLIZUMAB
     Dosage: 200 MG, ONCE EVERY 3 WK
     Route: 042
     Dates: start: 20250404, end: 20250404
  59. PEMBROLIZUMAB [Suspect]
     Active Substance: PEMBROLIZUMAB
     Dosage: 200 MG, ONCE EVERY 3 WK
     Route: 042
     Dates: start: 20250221, end: 20250221
  60. PEMBROLIZUMAB [Suspect]
     Active Substance: PEMBROLIZUMAB
     Dosage: 200 MG, ONCE EVERY 3 WK
     Route: 042
     Dates: start: 20250124, end: 20250124
  61. PEMBROLIZUMAB [Suspect]
     Active Substance: PEMBROLIZUMAB
     Dosage: 200 MG, ONCE EVERY 3 WK
     Route: 042
     Dates: start: 20240130, end: 20240130
  62. PEMBROLIZUMAB [Suspect]
     Active Substance: PEMBROLIZUMAB
     Dosage: 200 MG, ONCE EVERY 3 WK
     Route: 042
     Dates: start: 20240424, end: 20240424
  63. PEMBROLIZUMAB [Suspect]
     Active Substance: PEMBROLIZUMAB
     Dosage: 200 MG, ONCE EVERY 3 WK
     Route: 042
     Dates: start: 20240516, end: 20240516
  64. PEMBROLIZUMAB [Suspect]
     Active Substance: PEMBROLIZUMAB
     Dosage: 200 MG, ONCE EVERY 3 WK
     Route: 042
     Dates: start: 20241204, end: 20241204
  65. DEXAMETHASONE [Concomitant]
     Active Substance: DEXAMETHASONE
     Indication: Premedication
     Dosage: 8 MG, ONCE EVERY 1 WK
     Route: 048
     Dates: start: 20230921
  66. ASPIRIN [Concomitant]
     Active Substance: ASPIRIN
     Indication: Prophylaxis
     Dosage: 100 MG, QD
     Route: 048
     Dates: start: 20200101
  67. LANTUS [Concomitant]
     Active Substance: INSULIN GLARGINE
     Indication: Diabetes mellitus
     Dosage: 14 IU, QD
     Route: 058
     Dates: start: 20230501
  68. METFORMIN HYDROCHLORIDE [Concomitant]
     Active Substance: METFORMIN HYDROCHLORIDE
     Indication: Diabetes mellitus
     Dosage: 850 MG, ONCE EVERY 12HR
     Route: 048
     Dates: start: 20230501
  69. METFORMIN HYDROCHLORIDE [Concomitant]
     Active Substance: METFORMIN HYDROCHLORIDE
     Dosage: 1000 MG, ONCE EVERY 12HR
     Route: 048
     Dates: start: 20230501
  70. METFORMIN HYDROCHLORIDE [Concomitant]
     Active Substance: METFORMIN HYDROCHLORIDE
     Dosage: FREQ:12 H;850 MG, QD
     Route: 048
     Dates: start: 20230501
  71. METFORMIN HYDROCHLORIDE [Concomitant]
     Active Substance: METFORMIN HYDROCHLORIDE
     Dosage: FREQ:12 H;1000 MG, ONCE EVERY 12HR
     Route: 048
     Dates: start: 20230501
  72. PREDNISONE [Concomitant]
     Active Substance: PREDNISONE
     Indication: Product used for unknown indication
     Dosage: 25 MG, QD
     Route: 048
     Dates: start: 20240110, end: 20240112
  73. PREDNISONE [Concomitant]
     Active Substance: PREDNISONE
     Dosage: 25 MG, QD
     Route: 048
     Dates: start: 20240110, end: 20240112
  74. PANTOPRAZOLE SODIUM [Concomitant]
     Active Substance: PANTOPRAZOLE SODIUM
     Indication: Abdominal pain upper
     Dosage: 40 MG, QD
     Route: 048
     Dates: start: 20230920
  75. FOLIC ACID [Concomitant]
     Active Substance: FOLIC ACID
     Indication: Prophylaxis
     Dosage: 5 MG, QD
     Route: 048
     Dates: start: 20230618
  76. CYANOCOBALAMIN [Concomitant]
     Active Substance: CYANOCOBALAMIN
     Indication: Product used for unknown indication
     Dosage: 1000
     Route: 030
     Dates: start: 20230918
  77. FILGRASTIM [Concomitant]
     Active Substance: FILGRASTIM
     Indication: Neutropenia
     Dosage: 30, 5 DAY PER CYCLE
     Route: 058
     Dates: start: 20240912
  78. FUROSEMIDE SODIUM [Concomitant]
     Active Substance: FUROSEMIDE SODIUM
     Indication: Peripheral swelling
     Dosage: FREQ:4 WK;25 MG, ONCE EVERY 4 WK
     Route: 048
     Dates: start: 20240724

REACTIONS (3)
  - Second primary malignancy [Not Recovered/Not Resolved]
  - Prostate cancer [Not Recovered/Not Resolved]
  - Rectal haemorrhage [Recovered/Resolved]

NARRATIVE: CASE EVENT DATE: 20240717
